FAERS Safety Report 9193488 (Version 1)
Quarter: 2013Q1

REPORT INFORMATION
  Report Type: Spontaneous
  Country: US (occurrence: None)
  Receive Date: 20130325
  Receipt Date: 20130325
  Transmission Date: 20140127
  Serious: Yes (Hospitalization)
  Sender: FDA-Public Use
  Company Number: None

PATIENT
  Age: 85 Year
  Sex: Female
  Weight: 66 kg

DRUGS (8)
  1. DABIGATRAN [Suspect]
     Indication: ATRIAL FIBRILLATION
     Route: 048
     Dates: start: 20120420, end: 20121020
  2. OMEPRAZOLE [Concomitant]
  3. CELEXA [Concomitant]
  4. DIGOXIN [Concomitant]
  5. FUROSEMIDE [Concomitant]
  6. POTASSIUM CHLORIDE [Concomitant]
  7. LISINOPRIL [Concomitant]
  8. ARICEPT [Concomitant]

REACTIONS (2)
  - Gastrointestinal haemorrhage [None]
  - Haematochezia [None]
